FAERS Safety Report 8612670-2 (Version None)
Quarter: 2012Q3

REPORT INFORMATION
  Report Type: 
  Country: None (occurrence: None)
  Receive Date: 20120822
  Receipt Date: 20111108
  Transmission Date: 20120928
  Serious: No
  Sender: FDA-Public Use
  Company Number: US-ASTRAZENECA-2011SE57734

PATIENT
  Sex: Female
  Weight: 52.2 kg

DRUGS (2)
  1. SYMBICORT [Suspect]
     Indication: ASTHMA
     Dosage: 160 / 4.5 MCG 2 PUFFS TWICE A DAY , TOTAL DAILY DOSE 2 PUFFS
     Route: 055
     Dates: start: 20080101
  2. LISINOPRIL [Concomitant]
     Indication: BLOOD PRESSURE
     Route: 048

REACTIONS (2)
  - DRUG DOSE OMISSION [None]
  - DYSPNOEA [None]
